FAERS Safety Report 9459983 (Version 1)
Quarter: 2013Q3

REPORT INFORMATION
  Report Type: Report from Study
  Country: CA (occurrence: CA)
  Receive Date: 20130815
  Receipt Date: 20130815
  Transmission Date: 20140515
  Serious: Yes (Other)
  Sender: FDA-Public Use
  Company Number: CA-ROCHE-1136262

PATIENT
  Sex: Female
  Weight: 67 kg

DRUGS (10)
  1. AVASTIN [Suspect]
     Indication: GLIOBLASTOMA
     Route: 042
     Dates: start: 20110829
  2. KEPPRA [Concomitant]
  3. DILANTIN [Concomitant]
  4. DECADRON [Concomitant]
  5. CLOBAZAM [Concomitant]
  6. LIPITOR [Concomitant]
  7. ATENOLOL [Concomitant]
  8. ZANTAC [Concomitant]
  9. SENOKOT [Concomitant]
     Route: 065
  10. SOFLAX (CANADA) [Concomitant]
     Route: 065

REACTIONS (8)
  - Radiation necrosis [Unknown]
  - Unevaluable event [Not Recovered/Not Resolved]
  - Wound [Not Recovered/Not Resolved]
  - Wound [Not Recovered/Not Resolved]
  - Skin fragility [Unknown]
  - Skin swelling [Recovering/Resolving]
  - Skin wound [Recovering/Resolving]
  - Fatigue [Not Recovered/Not Resolved]
